FAERS Safety Report 23085373 (Version 1)
Quarter: 2023Q4

REPORT INFORMATION
  Report Type: Spontaneous
  Country: PL (occurrence: PL)
  Receive Date: 20231019
  Receipt Date: 20231019
  Transmission Date: 20240109
  Serious: Yes (Other)
  Sender: FDA-Public Use
  Company Number: None

PATIENT
  Age: 71 Year
  Sex: Male
  Weight: 62 kg

DRUGS (2)
  1. CARBOPLATIN [Suspect]
     Active Substance: CARBOPLATIN
     Dosage: 300 MG
     Route: 042
     Dates: start: 20211004, end: 20211006
  2. ETOPOSIDE [Suspect]
     Active Substance: ETOPOSIDE
     Dosage: 171 MG
     Route: 042
     Dates: start: 20211004, end: 20211006

REACTIONS (2)
  - Bronchitis [Recovered/Resolved with Sequelae]
  - Neutropenia [Recovered/Resolved with Sequelae]

NARRATIVE: CASE EVENT DATE: 20211025
